FAERS Safety Report 11824481 (Version 2)
Quarter: 2016Q1

REPORT INFORMATION
  Report Type: Spontaneous
  Country: JP (occurrence: JP)
  Receive Date: 20151210
  Receipt Date: 20160119
  Transmission Date: 20160525
  Serious: Yes (Disabling, Other)
  Sender: FDA-Public Use
  Company Number: JP-MYLANLABS-2015M1043134

PATIENT

DRUGS (8)
  1. FENTANYL. [Suspect]
     Active Substance: FENTANYL
     Indication: INDUCTION OF ANAESTHESIA
     Dosage: UNK
     Route: 042
  2. PROPOFOL. [Suspect]
     Active Substance: PROPOFOL
     Indication: INDUCTION OF ANAESTHESIA
     Dosage: UNK
     Route: 042
  3. HYDROXYETHYLSTARCH [Suspect]
     Active Substance: HETASTARCH
     Indication: VOLUME BLOOD DECREASED
     Dosage: UNK
     Route: 041
  4. ESLAX [Suspect]
     Active Substance: ROCURONIUM BROMIDE
     Indication: INDUCTION OF ANAESTHESIA
     Dosage: UNK
     Route: 042
  5. ALBUMIN [Concomitant]
     Active Substance: ALBUMIN (HUMAN)
     Indication: VOLUME BLOOD DECREASED
     Dosage: 250 ML, QD
     Route: 042
  6. REMIFENTANIL [Suspect]
     Active Substance: REMIFENTANIL
     Indication: INDUCTION OF ANAESTHESIA
     Dosage: UNK
     Route: 042
  7. RINGER GLUCOS [Suspect]
     Active Substance: CALCIUM CHLORIDE\DEXTROSE\POTASSIUM CHLORIDE\SODIUM CHLORIDE
     Indication: VOLUME BLOOD DECREASED
     Dosage: UNK
     Route: 041
  8. SEVOFLURANE MYLAN [Suspect]
     Active Substance: SEVOFLURANE
     Indication: MAINTENANCE OF ANAESTHESIA
     Dosage: UNK
     Route: 055

REACTIONS (6)
  - Visual impairment [Not Recovered/Not Resolved]
  - Optic neuritis [Unknown]
  - Hypotension [Unknown]
  - Volume blood decreased [Unknown]
  - Capillary permeability increased [Unknown]
  - Papilloedema [Unknown]
